FAERS Safety Report 5203787-3 (Version None)
Quarter: 2007Q1

REPORT INFORMATION
  Report Type: 
  Country: None (occurrence: None)
  Receive Date: 20070109
  Receipt Date: 20070109
  Transmission Date: 20070707
  Serious: Yes (Other)
  Sender: FDA-Public Use
  Company Number: None

PATIENT
  Age: 8 Month
  Sex: Male
  Weight: 9.5255 kg

DRUGS (3)
  1. CLINDAMYCIN [Suspect]
     Indication: INFECTION
     Dosage: 2% 1X DAY VAG
     Route: 067
     Dates: start: 20060106, end: 20060106
  2. CLINDAMYCIN [Suspect]
     Indication: INFECTION
     Dosage: 2% 1X DAY VAG
     Route: 067
     Dates: start: 20060109, end: 20060109
  3. CLINDAMYCIN [Concomitant]

REACTIONS (6)
  - DRUG EXPOSURE VIA BREAST MILK [None]
  - LETHARGY [None]
  - MALAISE [None]
  - PALLOR [None]
  - PYREXIA [None]
  - VOMITING [None]
